FAERS Safety Report 7753793-X (Version None)
Quarter: 2011Q3

REPORT INFORMATION
  Report Type: 
  Country: None (occurrence: None)
  Receive Date: 20110825
  Receipt Date: 20110712
  Transmission Date: 20111222
  Serious: No
  Sender: FDA-Public Use
  Company Number: 332841

PATIENT
  Age: 46 Year
  Sex: Female

DRUGS (5)
  1. METFORMIN HCL [Concomitant]
  2. LEVEMIR [Suspect]
     Indication: TYPE 2 DIABETES MELLITUS
     Dosage: 60 IU, SUBCUTANEOUS
     Route: 058
  3. NOVOLOG [Concomitant]
  4. VICTOZA [Suspect]
     Indication: TYPE 2 DIABETES MELLITUS
     Dosage: 1.2 MG, QD, SUBCUTANEOUS
     Route: 058
  5. ACTOS [Concomitant]

REACTIONS (3)
  - NERVOUSNESS [None]
  - IRRITABILITY [None]
  - BLOOD GLUCOSE DECREASED [None]
